FAERS Safety Report 6141493-1 (Version None)
Quarter: 2009Q2

REPORT INFORMATION
  Report Type: 
  Country: None (occurrence: None)
  Receive Date: 20090402
  Receipt Date: 20090325
  Transmission Date: 20091009
  Serious: Yes (Hospitalization)
  Sender: FDA-Public Use
  Company Number: FR-TEVA-189250ISR

PATIENT
  Age: 56 Year
  Sex: Male

DRUGS (4)
  1. CARBOPLATIN [Suspect]
     Indication: SMALL CELL LUNG CANCER METASTATIC
     Route: 042
     Dates: start: 20090117, end: 20090117
  2. ETOPOSIDE [Suspect]
     Indication: SMALL CELL LUNG CANCER METASTATIC
     Route: 042
     Dates: start: 20090117, end: 20090117
  3. METOCLOPRAMIDE [Suspect]
     Route: 042
     Dates: start: 20090117, end: 20090117
  4. ONDANSETRON HYDROCHLORIDE [Suspect]
     Route: 042
     Dates: start: 20090117, end: 20090117

REACTIONS (3)
  - APLASIA [None]
  - ILEUS [None]
  - SMALL INTESTINAL OBSTRUCTION [None]
